FAERS Safety Report 7877385-7 (Version None)
Quarter: 2011Q4

REPORT INFORMATION
  Report Type: 
  Country: None (occurrence: None)
  Receive Date: 20111031
  Receipt Date: 20111017
  Transmission Date: 20120403
  Serious: Yes (Hospitalization)
  Sender: FDA-Public Use
  Company Number: KR-NAPPMUNDI-MAG-2011-0001602

PATIENT
  Sex: Male

DRUGS (1)
  1. OXYCODONE HCL [Suspect]
     Indication: ANALGESIC THERAPY
     Dosage: 160 MG, DAILY
     Route: 048
     Dates: start: 20090311

REACTIONS (1)
  - INTERVERTEBRAL DISC DISORDER [None]
